FAERS Safety Report 8313924-X (Version None)
Quarter: 2012Q2

REPORT INFORMATION
  Report Type: 
  Country: None (occurrence: None)
  Receive Date: 20120426
  Receipt Date: 20120426
  Transmission Date: 20120825
  Serious: Yes (Other)
  Sender: FDA-Public Use
  Company Number: None

PATIENT
  Age: 58 Year
  Sex: Male

DRUGS (3)
  1. CLINDAMYCIN [Concomitant]
     Route: 048
  2. ZOCOR [Concomitant]
     Route: 048
  3. LISINOPRIL AND HYDROCHLOROTHIAZIDE [Suspect]
     Dosage: 2 TABLETS
     Route: 048
     Dates: start: 20120118, end: 20120218

REACTIONS (4)
  - ABDOMINAL PAIN [None]
  - PRODUCT QUALITY ISSUE [None]
  - CONSTIPATION [None]
  - POLLAKIURIA [None]
